FAERS Safety Report 21436569 (Version 1)
Quarter: 2022Q4

REPORT INFORMATION
  Report Type: Spontaneous
  Country: ES (occurrence: ES)
  Receive Date: 20221010
  Receipt Date: 20221010
  Transmission Date: 20230113
  Serious: Yes (Hospitalization, Other)
  Sender: FDA-Public Use
  Company Number: ES-UCBSA-2022056382

PATIENT
  Sex: Female

DRUGS (3)
  1. LEVETIRACETAM [Suspect]
     Active Substance: LEVETIRACETAM
     Dosage: UNK
  2. CYCLOPHOSPHAMIDE [Suspect]
     Active Substance: CYCLOPHOSPHAMIDE
     Indication: Pulmonary embolism
     Dosage: UNK
  3. PENTOTHAL [Concomitant]
     Active Substance: THIOPENTAL SODIUM
     Dosage: UNK

REACTIONS (2)
  - Status epilepticus [Unknown]
  - Drug ineffective [Unknown]
